FAERS Safety Report 8551508-9 (Version None)
Quarter: 2012Q3

REPORT INFORMATION
  Report Type: 
  Country: None (occurrence: None)
  Receive Date: 20120730
  Receipt Date: 20120716
  Transmission Date: 20120928
  Serious: Yes (Life-Threatening)
  Sender: FDA-Public Use
  Company Number: PL-ROCHE-1089007

PATIENT
  Sex: Female
  Weight: 40 kg

DRUGS (11)
  1. PRIMACOR [Concomitant]
     Indication: MYOCARDIAL ISCHAEMIA
  2. KALIPOZ [Concomitant]
  3. BONIVA [Suspect]
     Indication: OSTEOPOROSIS POSTMENOPAUSAL
     Dosage: 3MG/ 3ML
     Route: 042
     Dates: start: 20110912
  4. CORDARONE [Concomitant]
     Indication: ARRHYTHMIA
  5. BISOPROLOL FUMARATE [Concomitant]
     Indication: MYOCARDIAL ISCHAEMIA
     Route: 048
  6. TORSEMIDE [Concomitant]
     Indication: HYPERTENSION
  7. EFFIENT [Concomitant]
     Indication: ACUTE CORONARY SYNDROME
     Route: 048
     Dates: start: 20110609
  8. TARDYFERON (POLAND) [Concomitant]
     Indication: ANAEMIA
  9. CORATOR [Concomitant]
     Indication: HYPERCHOLESTEROLAEMIA
     Route: 048
  10. ASPIRIN [Concomitant]
     Indication: MYOCARDIAL ISCHAEMIA
     Route: 048
  11. FLUTICASONE PROPIONATE [Concomitant]
     Indication: CHRONIC OBSTRUCTIVE PULMONARY DISEASE

REACTIONS (2)
  - ACUTE CORONARY SYNDROME [None]
  - ACUTE MYOCARDIAL INFARCTION [None]
